FAERS Safety Report 15357717 (Version 4)
Quarter: 2018Q4

REPORT INFORMATION
  Report Type: Spontaneous
  Country: US (occurrence: US)
  Receive Date: 20180906
  Receipt Date: 20181025
  Transmission Date: 20190204
  Serious: Yes (Death, Hospitalization, Other)
  Sender: FDA-Public Use
  Company Number: US-ACTELION-A-NJ2018-178050

PATIENT
  Age: 74 Year
  Sex: Female

DRUGS (1)
  1. OPSUMIT [Suspect]
     Active Substance: MACITENTAN
     Indication: PULMONARY ARTERIAL HYPERTENSION
     Dosage: 10 MG, QD
     Route: 048
     Dates: start: 20180721, end: 201808

REACTIONS (6)
  - Gastric haemorrhage [Not Recovered/Not Resolved]
  - Faeces discoloured [Not Recovered/Not Resolved]
  - Fluid overload [Recovered/Resolved]
  - Cardiac failure congestive [Unknown]
  - Death [Fatal]
  - Stomach mass [Not Recovered/Not Resolved]

NARRATIVE: CASE EVENT DATE: 20180723
